FAERS Safety Report 15885035 (Version 1)
Quarter: 2019Q1

REPORT INFORMATION
  Report Type: Spontaneous
  Country: FR (occurrence: FR)
  Receive Date: 20190129
  Receipt Date: 20190129
  Transmission Date: 20190417
  Serious: Yes (Hospitalization, Other)
  Sender: FDA-Public Use
  Company Number: FR-PFIZER INC-2019035066

PATIENT
  Age: 50 Year
  Sex: Male
  Weight: 77 kg

DRUGS (5)
  1. DOXORUBICIN HCL [Suspect]
     Active Substance: DOXORUBICIN HYDROCHLORIDE
     Indication: HODGKIN^S DISEASE
     Dosage: 72 MG, UNK
     Route: 041
     Dates: start: 20181127, end: 20181127
  2. BLEOMYCINE BELLON [Suspect]
     Active Substance: BLEOMYCIN SULFATE
     Indication: HODGKIN^S DISEASE
     Dosage: 19.5 MG, UNK
     Route: 041
     Dates: start: 20181205, end: 20181205
  3. ENDOXAN [Suspect]
     Active Substance: CYCLOPHOSPHAMIDE
     Indication: HODGKIN^S DISEASE
     Dosage: 2440 MG, UNK
     Route: 041
     Dates: start: 20181127, end: 20181127
  4. ETOPOPHOS [Suspect]
     Active Substance: ETOPOSIDE PHOSPHATE
     Indication: HODGKIN^S DISEASE
     Dosage: 410 MG, 1X/DAY
     Route: 041
     Dates: start: 20181127, end: 20181129
  5. VINCRISTINE TEVA [Suspect]
     Active Substance: VINCRISTINE
     Indication: HODGKIN^S DISEASE
     Dosage: 2 MG, UNK
     Route: 041
     Dates: start: 20181205, end: 20181205

REACTIONS (4)
  - Epistaxis [Recovered/Resolved]
  - Thrombocytopenia [Not Recovered/Not Resolved]
  - Pyrexia [Recovered/Resolved]
  - Leukopenia [Not Recovered/Not Resolved]

NARRATIVE: CASE EVENT DATE: 20181206
